FAERS Safety Report 11970133 (Version 1)
Quarter: 2016Q1

REPORT INFORMATION
  Report Type: Report from Study
  Country: US (occurrence: US)
  Receive Date: 20160128
  Receipt Date: 20160128
  Transmission Date: 20160526
  Serious: No
  Sender: FDA-Public Use
  Company Number: US-ABBVIE-15K-163-1388948-00

PATIENT
  Sex: Female

DRUGS (1)
  1. HUMIRA [Suspect]
     Active Substance: ADALIMUMAB
     Indication: PSORIASIS
     Route: 065
     Dates: start: 20141221

REACTIONS (4)
  - Inappropriate schedule of drug administration [Unknown]
  - Joint swelling [Recovering/Resolving]
  - Overweight [Recovering/Resolving]
  - Peripheral swelling [Recovering/Resolving]
